FAERS Safety Report 10583431 (Version 2)
Quarter: 2014Q4

REPORT INFORMATION
  Report Type: Spontaneous
  Country: US (occurrence: None)
  Receive Date: 20141112
  Receipt Date: 20141128
  Transmission Date: 20150529
  Serious: Yes (Hospitalization)
  Sender: FDA-Public Use
  Company Number: US-001421

PATIENT
  Age: 61 Year
  Sex: Female

DRUGS (1)
  1. GATTEX [Suspect]
     Active Substance: TEDUGLUTIDE\WATER
     Indication: SHORT-BOWEL SYNDROME
     Dosage: DF, SUBCUTANEOUS
     Route: 058
     Dates: start: 20140709, end: 20141019

REACTIONS (4)
  - Fall [None]
  - Head injury [None]
  - Diarrhoea [None]
  - Drug dose omission [None]

NARRATIVE: CASE EVENT DATE: 201410
